FAERS Safety Report 19489583 (Version 2)
Quarter: 2021Q3

REPORT INFORMATION
  Report Type: Spontaneous
  Country: JP (occurrence: JP)
  Receive Date: 20210704
  Receipt Date: 20210706
  Transmission Date: 20211014
  Serious: Yes (Death, Hospitalization)
  Sender: FDA-Public Use
  Company Number: JP-TEVA-2021-JP-003141J

PATIENT
  Age: 87 Year
  Sex: Female

DRUGS (1)
  1. FUROSEMIDE TABLET 40MG ^TAKEDA TEVA^ [Suspect]
     Active Substance: FUROSEMIDE
     Indication: PRODUCT USED FOR UNKNOWN INDICATION
     Route: 065
     Dates: start: 202011, end: 202012

REACTIONS (1)
  - Toxic epidermal necrolysis [Fatal]
